FAERS Safety Report 18230178 (Version 1)
Quarter: 2020Q3

REPORT INFORMATION
  Report Type: Spontaneous
  Country: DE (occurrence: DE)
  Receive Date: 20200903
  Receipt Date: 20200903
  Transmission Date: 20201103
  Serious: Yes (Hospitalization)
  Sender: FDA-Public Use
  Company Number: DE-PURDUE-USA-2020-0164606

PATIENT
  Age: 79 Year
  Sex: Female

DRUGS (9)
  1. BUPRENORPHINE. [Concomitant]
     Active Substance: BUPRENORPHINE
     Dosage: 5 G, WECHSEL ALLE 3 TAGE
     Route: 065
  2. URAPIDIL [Concomitant]
     Active Substance: URAPIDIL
     Dosage: 30 MG, BID (30 MG, 1?0?1?0)
     Route: 065
  3. HYDROMORPHONE HCL (SIMILAR TO 19?892) [Suspect]
     Active Substance: HYDROMORPHONE HYDROCHLORIDE
     Indication: PRODUCT USED FOR UNKNOWN INDICATION
     Dosage: UNK (NK MG, NK)
     Route: 065
  4. AMLODIPIN                          /00972401/ [Concomitant]
     Active Substance: AMLODIPINE BESYLATE
     Dosage: 5 MG, BID (5 MG, 1?0?1?0)
     Route: 065
  5. PANTOPRAZOL [Concomitant]
     Active Substance: PANTOPRAZOLE SODIUM
     Dosage: 40 MG, DAILY (40 MG, 1?0?0?0)
     Route: 065
  6. NALOXONE W/TILIDINE [Suspect]
     Active Substance: NALOXONE HYDROCHLORIDE\TILIDINE HYDROCHLORIDE
     Indication: PRODUCT USED FOR UNKNOWN INDICATION
     Dosage: UNK UNK, BID (UNK (8|100 MG, 1?0?1?0)
     Route: 065
  7. LEVOTHYROXINE SODIUM. [Concomitant]
     Active Substance: LEVOTHYROXINE SODIUM
     Dosage: 75 GRAM, DAILY (75 G, 1?0?0?0)
     Route: 065
  8. RAMIPRIL. [Concomitant]
     Active Substance: RAMIPRIL
     Dosage: 5 MG, BID (5 MG, 1?0?1?0)
     Route: 065
  9. PREDNISOLON                        /00016201/ [Concomitant]
     Active Substance: PREDNISOLONE
     Dosage: 5 MG, DAILY (5 MG, 1?0?0?0)
     Route: 065

REACTIONS (3)
  - Fall [Recovering/Resolving]
  - Dehydration [Recovering/Resolving]
  - Aphasia [Recovering/Resolving]
